FAERS Safety Report 9265836 (Version 2)
Quarter: 2013Q3

REPORT INFORMATION
  Report Type: Spontaneous
  Country: JP (occurrence: JP)
  Receive Date: 20130501
  Receipt Date: 20130705
  Transmission Date: 20140515
  Serious: No
  Sender: FDA-Public Use
  Company Number: JP-GLAXOSMITHKLINE-B0887723A

PATIENT
  Age: 27 Year
  Sex: Female

DRUGS (6)
  1. LAMICTAL [Suspect]
     Indication: BIPOLAR I DISORDER
     Dosage: 50MG PER DAY
     Route: 048
     Dates: start: 20130322, end: 20130507
  2. JZOLOFT [Concomitant]
     Indication: BIPOLAR I DISORDER
     Dosage: 50MG PER DAY
     Route: 048
     Dates: start: 20111202
  3. DEPAS [Concomitant]
     Indication: BIPOLAR I DISORDER
     Dosage: .5MG PER DAY
     Route: 048
     Dates: start: 20111202
  4. ROHYPNOL [Concomitant]
     Indication: BIPOLAR I DISORDER
     Dosage: 2MG PER DAY
     Route: 048
     Dates: start: 20111202
  5. AMOBAN [Concomitant]
     Indication: BIPOLAR I DISORDER
     Dosage: 7.5MG PER DAY
     Route: 048
     Dates: start: 20130212
  6. LEXOTAN [Concomitant]
     Indication: BIPOLAR I DISORDER
     Dosage: 10MG TWICE PER DAY
     Route: 048
     Dates: start: 20120110

REACTIONS (3)
  - Pityriasis rosea [Recovered/Resolved]
  - Eczema [Unknown]
  - Viral infection [Unknown]
